FAERS Safety Report 13571132 (Version 1)
Quarter: 2017Q2

REPORT INFORMATION
  Report Type: Spontaneous
  Country: BR (occurrence: BR)
  Receive Date: 20170523
  Receipt Date: 20170523
  Transmission Date: 20170830
  Serious: Yes (Hospitalization)
  Sender: FDA-Public Use
  Company Number: BR-ROCHE-1937141

PATIENT
  Sex: Male
  Weight: 69 kg

DRUGS (9)
  1. ONDANSETRON [Concomitant]
     Active Substance: ONDANSETRON
  2. TEVAIRINOT [Suspect]
     Active Substance: IRINOTECAN HYDROCHLORIDE
     Indication: COLON CANCER
     Route: 042
  3. FAULDLEUCO [Suspect]
     Active Substance: LEUCOVORIN CALCIUM
     Indication: COLON CANCER
     Route: 042
  4. PANTOPRAZOLE [Concomitant]
     Active Substance: PANTOPRAZOLE
  5. TRAYENTA [Concomitant]
     Active Substance: LINAGLIPTIN
  6. FAULDFLUOR [Suspect]
     Active Substance: FLUOROURACIL
     Indication: COLON CANCER
     Dosage: 756.8MG + INFUSION PUMP 4540.8MG
     Route: 042
  7. SECOTEX [Concomitant]
     Active Substance: TAMSULOSIN
  8. AVASTIN [Suspect]
     Active Substance: BEVACIZUMAB
     Indication: COLON CANCER
     Route: 042
  9. DIVELOL [Concomitant]

REACTIONS (4)
  - Nasal congestion [Recovered/Resolved]
  - Sneezing [Recovered/Resolved]
  - Pyrexia [Recovered/Resolved]
  - Neutropenia [Recovered/Resolved]
